FAERS Safety Report 5381066-1 (Version None)
Quarter: 2007Q3

REPORT INFORMATION
  Report Type: 
  Country: None (occurrence: None)
  Receive Date: 20070706
  Receipt Date: 20070628
  Transmission Date: 20080115
  Serious: Yes (Disabling, Other)
  Sender: FDA-Public Use
  Company Number: US-PFIZER INC-2006090656

PATIENT
  Sex: Female
  Weight: 63.5 kg

DRUGS (3)
  1. LIPITOR [Suspect]
     Indication: BLOOD CHOLESTEROL INCREASED
  2. HYPNOTICS AND SEDATIVES [Suspect]
     Indication: SEDATION
  3. SYNTHROID [Concomitant]

REACTIONS (5)
  - CARDIAC ARREST [None]
  - CARDIAC PACEMAKER MALFUNCTION [None]
  - HEART RATE INCREASED [None]
  - HEPATIC FAILURE [None]
  - PARALYSIS [None]
